FAERS Safety Report 26194590 (Version 1)
Quarter: 2025Q4

REPORT INFORMATION
  Report Type: Spontaneous
  Country: EU (occurrence: EU)
  Receive Date: 20251224
  Receipt Date: 20251224
  Transmission Date: 20260118
  Serious: Yes (Other)
  Sender: TAKEDA
  Company Number: EU-TAKEDA-2025TUS103160

PATIENT
  Age: 81 Year
  Sex: Female

DRUGS (6)
  1. ANAGRELIDE [Suspect]
     Active Substance: ANAGRELIDE
     Indication: Essential thrombocythaemia
     Dosage: UNK
  2. ANAGRELIDE [Suspect]
     Active Substance: ANAGRELIDE
     Indication: Product used for unknown indication
  3. HYDROXYUREA [Suspect]
     Active Substance: HYDROXYUREA
     Indication: Essential thrombocythaemia
     Dosage: UNK
  4. PEGYLATED INTERFERON ALPHA NOS [Suspect]
     Active Substance: PEGINTERFERON ALFA-2A OR PEGINTERFERON ALFA-2B
     Indication: Essential thrombocythaemia
     Dosage: UNK
  5. THIOGUANINE [Suspect]
     Active Substance: THIOGUANINE
     Indication: Essential thrombocythaemia
     Dosage: UNK
  6. PEGINTERFERON ALFA-2A [Suspect]
     Active Substance: PEGINTERFERON ALFA-2A
     Indication: Product used for unknown indication
     Dosage: UNK

REACTIONS (5)
  - Therapeutic response decreased [Unknown]
  - Skin reaction [Unknown]
  - Drug intolerance [Unknown]
  - Off label use [Unknown]
  - Skin ulcer [Unknown]
